FAERS Safety Report 6587518-0 (Version None)
Quarter: 2010Q1

REPORT INFORMATION
  Report Type: 
  Country: None (occurrence: None)
  Receive Date: 20100204
  Receipt Date: 20100121
  Transmission Date: 20100710
  Serious: Yes (Other)
  Sender: FDA-Public Use
  Company Number: A-US2004-04296

PATIENT
  Age: 61 Year
  Sex: Female
  Weight: 69.2 kg

DRUGS (4)
  1. TRACLEER [Suspect]
     Indication: PULMONARY ARTERIAL HYPERTENSION
     Dosage: 125 MG, BID, ORAL, 62.5 MG, BID, ORAL, UNK, UNK, ORAL
     Route: 048
     Dates: start: 20010315, end: 20010604
  2. TRACLEER [Suspect]
     Indication: PULMONARY ARTERIAL HYPERTENSION
     Dosage: 125 MG, BID, ORAL, 62.5 MG, BID, ORAL, UNK, UNK, ORAL
     Route: 048
     Dates: start: 20010605, end: 20031213
  3. TRACLEER [Suspect]
     Indication: PULMONARY ARTERIAL HYPERTENSION
     Dosage: 125 MG, BID, ORAL, 62.5 MG, BID, ORAL, UNK, UNK, ORAL
     Route: 048
     Dates: end: 20070331
  4. WARFARIN SODIUM [Concomitant]

REACTIONS (5)
  - AUTOIMMUNE HEPATITIS [None]
  - COUGH [None]
  - NASAL CONGESTION [None]
  - UPPER RESPIRATORY TRACT INFECTION [None]
  - VOMITING [None]
